FAERS Safety Report 5080897-5 (Version None)
Quarter: 2006Q3

REPORT INFORMATION
  Report Type: 
  Country: None (occurrence: None)
  Receive Date: 20060810
  Receipt Date: 20060726
  Transmission Date: 20061208
  Serious: Yes (Life-Threatening, Hospitalization)
  Sender: FDA-Public Use
  Company Number: 8018179

PATIENT
  Age: 87 Year
  Sex: Female
  Weight: 58 kg

DRUGS (5)
  1. KEPPRA [Suspect]
     Indication: CONVULSION
     Dosage: 2000 MG /D PO
     Route: 048
  2. NEURONTIN [Suspect]
     Indication: CONVULSION
     Dosage: 600 MG /D PO
     Route: 048
  3. BELOK-ZOK MITE RETARD [Suspect]
     Dosage: 95 MG /D PO A FEW YEARS
     Route: 048
  4. PLAVIX [Suspect]
     Dosage: 75 MG /D PO A FEW YEARS
     Route: 048
  5. DELIX PLUS [Suspect]
     Dosage: PO
     Route: 048

REACTIONS (3)
  - AUTOIMMUNE DISORDER [None]
  - GENERAL PHYSICAL HEALTH DETERIORATION [None]
  - HEPATITIS TOXIC [None]
